FAERS Safety Report 4758833-8 (Version None)
Quarter: 2005Q3

REPORT INFORMATION
  Report Type: 
  Country: None (occurrence: None)
  Receive Date: 20050901
  Receipt Date: 20050810
  Transmission Date: 20060218
  Serious: Yes (Death, Other)
  Sender: FDA-Public Use
  Company Number: 200511774DE

PATIENT
  Age: 71 Year
  Sex: Male

DRUGS (2)
  1. CLEXANE MULTI INJEKTIONSLOESUNG [Suspect]
  2. CORDAREX [Concomitant]

REACTIONS (6)
  - CARDIAC DEATH [None]
  - DRUG INEFFECTIVE [None]
  - OEDEMA PERIPHERAL [None]
  - PHARMACEUTICAL PRODUCT COMPLAINT [None]
  - PULMONARY EMBOLISM [None]
  - SUDDEN CARDIAC DEATH [None]
